FAERS Safety Report 5136151-6 (Version None)
Quarter: 2006Q4

REPORT INFORMATION
  Report Type: 
  Country: None (occurrence: None)
  Receive Date: 20061027
  Receipt Date: 20061016
  Transmission Date: 20070319
  Serious: Yes (Hospitalization, Other)
  Sender: FDA-Public Use
  Company Number: US-JNJFOC-20061004708

PATIENT
  Age: 26 Year
  Sex: Male

DRUGS (1)
  1. FENTANYL CITRATE [Suspect]
     Indication: INTENTIONAL DRUG MISUSE
     Route: 048

REACTIONS (3)
  - INTENTIONAL DRUG MISUSE [None]
  - LOSS OF CONSCIOUSNESS [None]
  - PULMONARY OEDEMA [None]
